FAERS Safety Report 4290082-2 (Version None)
Quarter: 2004Q1

REPORT INFORMATION
  Report Type: 
  Country: None (occurrence: None)
  Receive Date: 20040209
  Receipt Date: 20030915
  Transmission Date: 20041129
  Serious: Yes (Hospitalization)
  Sender: FDA-Public Use
  Company Number: USA030845196

PATIENT
  Age: 75 Year
  Sex: Female

DRUGS (5)
  1. EVISTA [Suspect]
     Indication: OSTEOPOROSIS
     Dosage: 60 MG/DAY
  2. ACTOS [Concomitant]
  3. VIOXX [Concomitant]
  4. GLYBURIDE [Concomitant]
  5. PRINIVIL [Concomitant]

REACTIONS (1)
  - PULMONARY EMBOLISM [None]
